FAERS Safety Report 10038343 (Version 1)
Quarter: 2014Q1

REPORT INFORMATION
  Report Type: Spontaneous
  Country: US (occurrence: None)
  Receive Date: 20140306
  Receipt Date: 20140306
  Transmission Date: 20141002
  Serious: Yes (Life-Threatening)
  Sender: FDA-Public Use
  Company Number: 163-21880-13080402

PATIENT
  Age: 57 Year
  Sex: Male

DRUGS (3)
  1. REVLIMID(LENALIDOMIDE)(25 MILLIGRAM, CAPSULES) [Suspect]
     Indication: PLASMA CELL MYELOMA
     Route: 048
     Dates: start: 201109
  2. ASA(ACETYLSALICYLIC ACID) [Concomitant]
  3. FLOMAX [Concomitant]

REACTIONS (1)
  - Pneumonia [None]
